FAERS Safety Report 26082492 (Version 1)
Quarter: 2025Q4

REPORT INFORMATION
  Report Type: Spontaneous
  Country: US (occurrence: None)
  Receive Date: 20251123
  Receipt Date: 20251123
  Transmission Date: 20260117
  Serious: Yes (unspecified)
  Sender: FDA-CTU
  Company Number: None

PATIENT
  Age: 39 Year
  Sex: Female
  Weight: 81 kg

DRUGS (5)
  1. CIPROFLOXACIN\DEXAMETHASONE [Suspect]
     Active Substance: CIPROFLOXACIN\DEXAMETHASONE
     Indication: Otitis media
     Dosage: AURICULAR (OTIC)
     Route: 001
     Dates: start: 20251030, end: 20251031
  2. FAMOTIDINE [Concomitant]
     Active Substance: FAMOTIDINE
  3. FLONASE [Concomitant]
     Active Substance: FLUTICASONE PROPIONATE
  4. MAGNESIUM [Concomitant]
     Active Substance: MAGNESIUM
  5. VITAMINS [Concomitant]
     Active Substance: VITAMINS

REACTIONS (5)
  - Tendon pain [None]
  - Myalgia [None]
  - Asthenia [None]
  - Nerve injury [None]
  - Musculoskeletal stiffness [None]

NARRATIVE: CASE EVENT DATE: 20251031
